FAERS Safety Report 9520424 (Version 1)
Quarter: 2013Q3

REPORT INFORMATION
  Report Type: Report from Study
  Country: DE (occurrence: DE)
  Receive Date: 20130912
  Receipt Date: 20130912
  Transmission Date: 20140515
  Serious: No
  Sender: FDA-Public Use
  Company Number: PHHY2013DE097256

PATIENT
  Sex: Male

DRUGS (4)
  1. AMN107 [Suspect]
     Indication: CHRONIC MYELOID LEUKAEMIA
     Dosage: 600 MG, PER DAY
     Route: 048
     Dates: start: 20120503, end: 20130205
  2. AMN107 [Suspect]
     Dosage: 450 MG, PER DAY
     Route: 048
     Dates: start: 20130214
  3. SIMVASTATIN [Concomitant]
     Dosage: 20 MG, UNK
     Dates: start: 2001
  4. SYMBICORT [Concomitant]
     Dosage: UNK UKN, UNK
     Dates: start: 2000

REACTIONS (1)
  - Dyspnoea [Recovered/Resolved]
